FAERS Safety Report 17466360 (Version 1)
Quarter: 2020Q1

REPORT INFORMATION
  Report Type: Spontaneous
  Country: US (occurrence: US)
  Receive Date: 20200212
  Receipt Date: 20200212
  Transmission Date: 20200409
  Serious: Yes (Life-Threatening)
  Sender: FDA-Public Use
  Company Number: None

PATIENT
  Age: 78 Year
  Sex: Female
  Weight: 70 kg

DRUGS (7)
  1. ATANOLOL [Concomitant]
  2. COMBIGAN [Suspect]
     Active Substance: BRIMONIDINE TARTRATE\TIMOLOL MALEATE
     Indication: GLAUCOMA
     Dosage: ?          QUANTITY:1 GTT DROP(S);?
     Route: 031
     Dates: start: 201905, end: 201910
  3. VITAMIN C [Concomitant]
     Active Substance: ASCORBIC ACID
  4. LATANOPROST. [Concomitant]
     Active Substance: LATANOPROST
  5. VITAMIN D [Concomitant]
     Active Substance: VITAMIN D NOS
  6. DORZOLAMIDE [Concomitant]
     Active Substance: DORZOLAMIDE
  7. MULTI VITAMIN [Concomitant]
     Active Substance: VITAMINS

REACTIONS (1)
  - Loss of consciousness [None]

NARRATIVE: CASE EVENT DATE: 201909
